FAERS Safety Report 6642955-0 (Version None)
Quarter: 2010Q1

REPORT INFORMATION
  Report Type: 
  Country: None (occurrence: None)
  Receive Date: 20100319
  Receipt Date: 20100310
  Transmission Date: 20100710
  Serious: Yes (Disabling)
  Sender: FDA-Public Use
  Company Number: NO-PFIZER INC-2010031910

PATIENT
  Age: 44 Year
  Sex: Female

DRUGS (4)
  1. LIPITOR [Suspect]
     Dosage: 80 MG, 1X/DAY
     Route: 048
     Dates: start: 20050201, end: 20091101
  2. ALBYL-E [Concomitant]
     Indication: MYOCARDIAL INFARCTION
     Dosage: 75 MG, 1X/DAY
     Route: 048
     Dates: start: 20050201
  3. SELO-ZOK [Concomitant]
     Indication: MYOCARDIAL INFARCTION
     Dosage: 100 MG, 1X/DAY
     Route: 048
     Dates: start: 20050201
  4. IMDUR [Concomitant]
     Indication: MYOCARDIAL INFARCTION
     Dosage: 30 MG, 1X/DAY
     Route: 048
     Dates: start: 20050201

REACTIONS (1)
  - POLYNEUROPATHY [None]
